FAERS Safety Report 5972027-X (Version None)
Quarter: 2008Q4

REPORT INFORMATION
  Report Type: 
  Country: None (occurrence: None)
  Receive Date: 20081125
  Receipt Date: 20081110
  Transmission Date: 20090506
  Serious: Yes (Hospitalization)
  Sender: FDA-Public Use
  Company Number: 2008PL000206

PATIENT
  Age: 44 Year
  Sex: Male

DRUGS (4)
  1. AZATHIOPRINE [Suspect]
     Indication: IMMUNOSUPPRESSION
  2. TACROLIMUS (CON.) [Concomitant]
  3. PREDNISOLONE (CON.) [Concomitant]
  4. MYCOPHENOLATE MOFETIL (CON.) [Concomitant]

REACTIONS (2)
  - EPSTEIN-BARR VIRUS ASSOCIATED LYMPHOPROLIFERATIVE DISORDER [None]
  - SPINAL CORD COMPRESSION [None]
